FAERS Safety Report 13267845 (Version 1)
Quarter: 2017Q1

REPORT INFORMATION
  Report Type: Spontaneous
  Country: US (occurrence: US)
  Receive Date: 20170224
  Receipt Date: 20170224
  Transmission Date: 20170428
  Serious: No
  Sender: FDA-Public Use
  Company Number: US-BAYER-2017-037051

PATIENT
  Age: 54 Year
  Sex: Female
  Weight: 68 kg

DRUGS (1)
  1. MIRALAX [Suspect]
     Active Substance: POLYETHYLENE GLYCOL 3350
     Indication: GASTROINTESTINAL DISORDER
     Dosage: UNK UNK, PRN
     Route: 048

REACTIONS (7)
  - Mood swings [Unknown]
  - Anger [Unknown]
  - Paranoia [Unknown]
  - Urinary incontinence [Unknown]
  - Aggression [Unknown]
  - Oligodipsia [Unknown]
  - Decreased appetite [Unknown]
